FAERS Safety Report 16940722 (Version 1)
Quarter: 2019Q4

REPORT INFORMATION
  Report Type: Spontaneous
  Country: CA (occurrence: CA)
  Receive Date: 20191021
  Receipt Date: 20191021
  Transmission Date: 20200122
  Serious: Yes (Hospitalization, Other)
  Sender: FDA-Public Use
  Company Number: CA-APOTEX-2019AP023585

PATIENT
  Age: 17 Year
  Sex: Female

DRUGS (4)
  1. MINOCYCLINE [Suspect]
     Active Substance: MINOCYCLINE HYDROCHLORIDE
     Indication: ACNE
     Dosage: 50 MG, BID (TWICE DAILY)
     Route: 048
  2. AMINOSALICYLIC ACID [Suspect]
     Active Substance: AMINOSALICYLIC ACID
     Indication: PRODUCT USED FOR UNKNOWN INDICATION
     Dosage: UNK
     Route: 065
  3. ACETAMINOPHEN. [Suspect]
     Active Substance: ACETAMINOPHEN
     Indication: PRODUCT USED FOR UNKNOWN INDICATION
     Dosage: UNK
     Route: 065
  4. MINOCYCLINE [Suspect]
     Active Substance: MINOCYCLINE HYDROCHLORIDE
     Indication: ACNE PUSTULAR

REACTIONS (12)
  - Transaminases increased [Recovered/Resolved]
  - Drug-induced liver injury [Recovered/Resolved]
  - Pyrexia [Recovered/Resolved]
  - Eosinophilia [Recovered/Resolved]
  - Drug ineffective [Unknown]
  - Hepatitis [Recovered/Resolved]
  - Rash macular [Recovering/Resolving]
  - Dermatitis [Recovering/Resolving]
  - Rash vesicular [Recovering/Resolving]
  - Leukocytosis [Recovered/Resolved]
  - Lymphocytosis [Recovered/Resolved]
  - Lymphadenopathy [Recovering/Resolving]
